FAERS Safety Report 10046001 (Version 2)
Quarter: 2014Q2

REPORT INFORMATION
  Report Type: Spontaneous
  Country: US (occurrence: US)
  Receive Date: 20140330
  Receipt Date: 20140410
  Transmission Date: 20141212
  Serious: Yes (Hospitalization)
  Sender: FDA-Public Use
  Company Number: US-AMGEN-USASP2014022110

PATIENT
  Age: 72 Year
  Sex: Female

DRUGS (8)
  1. PEGFILGRASTIM [Suspect]
     Indication: BREAST CANCER
     Dosage: 6 MG, UNK
     Route: 058
  2. BEVACIZUMAB [Suspect]
     Indication: BREAST CANCER
     Dosage: (1 IN 14 D)
     Route: 042
     Dates: start: 20090303
  3. BEVACIZUMAB [Suspect]
     Dosage: (15 MG/KG, 1 IN 21 D)
     Route: 042
  4. PACLITAXEL [Suspect]
     Indication: BREAST CANCER
     Dosage: (80 MG/M2,1 IN 21 D) OVER 1 HR ON DAYS 1, 8 AND 15
     Route: 042
  5. DOXORUBICINE                       /00330901/ [Concomitant]
     Indication: BREAST CANCER
     Dosage: 60 MG/M2,  IVP ON DAY 1
     Route: 042
     Dates: start: 20090303
  6. DOXORUBICINE                       /00330901/ [Concomitant]
     Dosage: 60 MG/M2, Q14D (60 MG/M2,1 IN 14 D)
     Dates: start: 20090303
  7. CYCLOPHOSPHAMIDE [Concomitant]
     Indication: BREAST CANCER
     Dosage: 600 MG/M2, OVER 20-30 MIN ON DAY 1
     Route: 042
     Dates: start: 20090303
  8. CYCLOPHOSPHAMIDE [Concomitant]
     Dosage: (600 MG/M2,1 IN 14 D)
     Route: 042
     Dates: start: 20090303

REACTIONS (6)
  - Fatigue [Unknown]
  - Headache [Recovered/Resolved]
  - Muscular weakness [Unknown]
  - Neutrophil count decreased [Unknown]
  - Decreased appetite [Unknown]
  - Abdominal pain [Unknown]
